FAERS Safety Report 15779446 (Version 3)
Quarter: 2019Q3

REPORT INFORMATION
  Report Type: Report from Study
  Country: None (occurrence: BR)
  Receive Date: 20190101
  Receipt Date: 20190929
  Transmission Date: 20191004
  Serious: Yes (Other)
  Sender: FDA-Public Use
  Company Number: BR-ABBVIE-18K-020-2607457-00

PATIENT
  Age: 73 Year
  Sex: Male
  Weight: 54.93 kg

DRUGS (5)
  1. HUMIRA [Suspect]
     Active Substance: ADALIMUMAB
     Dosage: WEEK 2 LOADING DOSE
     Route: 058
     Dates: start: 2015, end: 2015
  2. HUMIRA [Suspect]
     Active Substance: ADALIMUMAB
     Route: 058
     Dates: start: 2015, end: 201801
  3. PENTASA [Concomitant]
     Active Substance: MESALAMINE
     Indication: CROHN^S DISEASE
  4. HUMIRA [Suspect]
     Active Substance: ADALIMUMAB
     Indication: CROHN^S DISEASE
     Dosage: WEEK 0 LOADING DOSE
     Route: 058
     Dates: start: 2015, end: 2015
  5. HUMIRA [Suspect]
     Active Substance: ADALIMUMAB
     Route: 058
     Dates: start: 20181213

REACTIONS (7)
  - Gastrointestinal pain [Recovered/Resolved]
  - Hypophagia [Recovered/Resolved]
  - Dyschezia [Recovered/Resolved]
  - Crohn^s disease [Recovered/Resolved]
  - Anaemia [Recovered/Resolved]
  - Procedural intestinal perforation [Recovered/Resolved]
  - Procedural vomiting [Recovered/Resolved]

NARRATIVE: CASE EVENT DATE: 20180306
